FAERS Safety Report 7785043-2 (Version None)
Quarter: 2011Q3

REPORT INFORMATION
  Report Type: 
  Country: None (occurrence: None)
  Receive Date: 20110929
  Receipt Date: 20110922
  Transmission Date: 20111222
  Serious: Yes (Death, Other)
  Sender: FDA-Public Use
  Company Number: US-BIOGENIDEC-2011BI030301

PATIENT
  Age: 47 Year
  Sex: Female

DRUGS (12)
  1. VITAMIN D [Concomitant]
     Indication: VITAMIN D DEFICIENCY
  2. LUNESTA [Concomitant]
     Indication: SEDATIVE THERAPY
  3. IMIPRAMINE [Concomitant]
  4. ESTRADIOL [Concomitant]
     Indication: HORMONE REPLACEMENT THERAPY
  5. PROVENTIL [Concomitant]
     Indication: BRONCHITIS
  6. TYSABRI [Suspect]
     Indication: MULTIPLE SCLEROSIS
     Route: 042
     Dates: start: 20110806, end: 20110806
  7. ULTRACET [Concomitant]
     Indication: PAIN IN EXTREMITY
  8. PROVENTIL [Concomitant]
     Indication: ASTHMA
  9. FOSAMAX [Concomitant]
     Indication: OSTEOPENIA
  10. IMIPRAMINE [Concomitant]
     Indication: BLADDER DYSFUNCTION
  11. CLONAZEPAM [Concomitant]
     Indication: ANXIETY
  12. FOLIC ACID [Concomitant]

REACTIONS (3)
  - CARDIO-RESPIRATORY ARREST [None]
  - ANAPHYLACTIC SHOCK [None]
  - CORONARY ARTERY DISEASE [None]
